FAERS Safety Report 8913534 (Version 1)
Quarter: 2012Q4

REPORT INFORMATION
  Report Type: Spontaneous
  Country: US (occurrence: None)
  Receive Date: 20121114
  Receipt Date: 20121114
  Transmission Date: 20130627
  Serious: Yes (Other)
  Sender: FDA-Public Use
  Company Number: USA/USA/12/0026578

PATIENT
  Age: 63 Year
  Sex: Female

DRUGS (4)
  1. IBUPROFEN [Suspect]
     Indication: BACK PAIN
     Dosage: 800 mg, 3 in 1 D, Unknown
  2. METOPROLOL SUCCINATE ER TABLETS 25 MG + 50 MG (METOPROLO SUCCINATE) [Concomitant]
  3. LISINOPRIL (LISINOPRIL) [Concomitant]
  4. ASPIRIN (ACETYLSALICYLIC ACID) [Concomitant]

REACTIONS (9)
  - Glomerulonephritis membranous [None]
  - Renal salt-wasting syndrome [None]
  - Hypoaldosteronism [None]
  - Autonomic nervous system imbalance [None]
  - Accelerated hypertension [None]
  - Weight decreased [None]
  - Hypovolaemia [None]
  - Dizziness postural [None]
  - Orthostatic hypotension [None]
